FAERS Safety Report 17437699 (Version 1)
Quarter: 2020Q1

REPORT INFORMATION
  Report Type: Report from Study
  Country: US (occurrence: US)
  Receive Date: 20200219
  Receipt Date: 20200219
  Transmission Date: 20200409
  Serious: Yes (Other)
  Sender: FDA-Public Use
  Company Number: NVSC2020US039462

PATIENT
  Age: 60 Year
  Sex: Male

DRUGS (1)
  1. GLEEVEC [Suspect]
     Active Substance: IMATINIB MESYLATE
     Indication: CHRONIC MYELOID LEUKAEMIA
     Dosage: UNK UNK, QD
     Route: 048
     Dates: start: 2012, end: 201601

REACTIONS (9)
  - Nightmare [Unknown]
  - Impaired work ability [Unknown]
  - Cold-stimulus headache [Unknown]
  - Night sweats [Unknown]
  - Therapeutic response decreased [Unknown]
  - Diarrhoea [Unknown]
  - Fatigue [Unknown]
  - Cytogenetic analysis abnormal [Unknown]
  - Chronic myeloid leukaemia transformation [Unknown]

NARRATIVE: CASE EVENT DATE: 2012
